FAERS Safety Report 17932224 (Version 45)
Quarter: 2023Q1

REPORT INFORMATION
  Report Type: Spontaneous
  Country: GB (occurrence: GB)
  Receive Date: 20200624
  Receipt Date: 20230212
  Transmission Date: 20230418
  Serious: Yes (Death, Life-Threatening, Hospitalization, Disabling, Other)
  Sender: FDA-Public Use
  Company Number: GB-MYLANLABS-2020M1053246

PATIENT
  Age: 56 Year
  Sex: Male
  Weight: 92 kg

DRUGS (78)
  1. CARBOCYSTEINE [Suspect]
     Active Substance: CARBOCYSTEINE
     Indication: Rheumatoid arthritis
     Dosage: 750 MILLIGRAM, ONCE A DAY
     Route: 065
  2. CARBOCYSTEINE [Suspect]
     Active Substance: CARBOCYSTEINE
     Dosage: 750 MILLIGRAM, ONCE A DAY
     Route: 048
     Dates: start: 20100917
  3. CIPROFLOXACIN [Suspect]
     Active Substance: CIPROFLOXACIN
     Indication: Rheumatoid arthritis
     Dosage: 1000 MILLIGRAM, ONCE A DAY
     Route: 048
     Dates: start: 20100917
  4. CIPROFLOXACIN [Suspect]
     Active Substance: CIPROFLOXACIN
     Indication: Abdominal discomfort
  5. CIPROFLOXACIN [Suspect]
     Active Substance: CIPROFLOXACIN
     Indication: Depression
  6. IRBESARTAN [Suspect]
     Active Substance: IRBESARTAN
     Indication: Abdominal discomfort
     Dosage: 150 MILLIGRAM, ONCE A DAY
     Route: 048
     Dates: start: 20100912
  7. IRBESARTAN [Suspect]
     Active Substance: IRBESARTAN
     Dosage: 150 MILLIGRAM, ONCE A DAY
     Route: 065
     Dates: start: 20100917
  8. SIMVASTATIN [Suspect]
     Active Substance: SIMVASTATIN
     Indication: Product used for unknown indication
     Dosage: 20 MILLIGRAM
     Route: 048
  9. SIMVASTATIN [Suspect]
     Active Substance: SIMVASTATIN
     Dosage: 40 MILLIGRAM
     Route: 048
  10. SIMVASTATIN [Suspect]
     Active Substance: SIMVASTATIN
     Dosage: 400 MICROGRAM
     Route: 048
  11. SIMVASTATIN [Suspect]
     Active Substance: SIMVASTATIN
     Indication: Product used for unknown indication
     Dosage: 20 MILLIGRAM
     Route: 048
  12. SIMVASTATIN [Suspect]
     Active Substance: SIMVASTATIN
     Dosage: 400 MICROGRAM
     Route: 048
  13. VENLAFAXINE [Suspect]
     Active Substance: VENLAFAXINE HYDROCHLORIDE
     Indication: Rheumatoid arthritis
     Dosage: 225 MILLIGRAM, ONCE A DAY
     Route: 065
  14. VENLAFAXINE [Suspect]
     Active Substance: VENLAFAXINE HYDROCHLORIDE
     Indication: Depression
  15. TAMSULOSIN [Suspect]
     Active Substance: TAMSULOSIN
     Indication: Product used for unknown indication
     Dosage: 400 MICROGRAM
     Route: 065
  16. CARBAMAZEPINE [Suspect]
     Active Substance: CARBAMAZEPINE
     Indication: Product used for unknown indication
     Dosage: 750 MILLIGRAM, ONCE A DAY
     Route: 048
  17. CLOZARIL [Suspect]
     Active Substance: CLOZAPINE
     Indication: Schizophrenia
     Dosage: 400 MILLIGRAM
     Route: 048
     Dates: start: 20090403
  18. CLOZARIL [Suspect]
     Active Substance: CLOZAPINE
     Dosage: 40 MILLIGRAM, ONCE A DAY (20 MILLIGRAM, BID (20 MG, BID)
     Route: 048
  19. CLOZARIL [Suspect]
     Active Substance: CLOZAPINE
     Dosage: 20 MILLIGRAM, ONCE A DAY
     Route: 048
  20. CLOZARIL [Suspect]
     Active Substance: CLOZAPINE
     Dosage: 8 MILLIGRAM, ONCE A DAY
     Route: 048
     Dates: start: 20200521, end: 202005
  21. CLOZARIL [Suspect]
     Active Substance: CLOZAPINE
     Dosage: 8 MILLIGRAM, ONCE A DAY
     Route: 048
     Dates: start: 202005
  22. CLOZARIL [Suspect]
     Active Substance: CLOZAPINE
     Dosage: 400 MILLIGRAM
     Route: 048
     Dates: start: 20200403
  23. CLOZARIL [Suspect]
     Active Substance: CLOZAPINE
     Dosage: 2 MILLIGRAM, ONCE A DAY
     Route: 048
     Dates: start: 202005, end: 20200528
  24. CLOZARIL [Suspect]
     Active Substance: CLOZAPINE
     Dosage: 20 MILLIGRAM, TWO TIMES A DAY
     Route: 048
  25. CLOZARIL [Suspect]
     Active Substance: CLOZAPINE
     Dosage: UNK
     Route: 065
     Dates: start: 20200403
  26. CIPROFLOXACIN [Suspect]
     Active Substance: CIPROFLOXACIN
     Indication: Abdominal discomfort
     Dosage: 1000 MILLIGRAM, ONCE A DAY
     Route: 048
     Dates: start: 20100917
  27. CIPROFLOXACIN [Suspect]
     Active Substance: CIPROFLOXACIN
     Indication: Rheumatoid arthritis
  28. CIPROFLOXACIN [Suspect]
     Active Substance: CIPROFLOXACIN
     Indication: Depression
  29. DEXAMETHASONE [Suspect]
     Active Substance: DEXAMETHASONE
     Indication: Radiotherapy to pharynx
     Dosage: 10 MILLIGRAM
     Route: 065
     Dates: start: 202005
  30. DEXAMETHASONE [Suspect]
     Active Substance: DEXAMETHASONE
     Indication: Radiotherapy
     Dosage: UNK
     Route: 048
     Dates: start: 202005
  31. DEXAMETHASONE [Suspect]
     Active Substance: DEXAMETHASONE
     Indication: Abdominal discomfort
     Dosage: 8 MILLIGRAM, ONCE A DAY
     Route: 048
     Dates: start: 20200515, end: 202005
  32. DEXAMETHASONE [Suspect]
     Active Substance: DEXAMETHASONE
     Dosage: 8 MILLIGRAM, ONCE A DAY(2 MG, QD (ORAL SOLUTION)
     Route: 048
     Dates: start: 20200521, end: 20200528
  33. DEXAMETHASONE [Suspect]
     Active Substance: DEXAMETHASONE
     Dosage: 8 MICROGRAM, ONCE A DAY
     Route: 048
     Dates: start: 20200515, end: 202005
  34. DEXAMETHASONE [Suspect]
     Active Substance: DEXAMETHASONE
     Dosage: 2 MILLIGRAM, ONCE A DAY(8 MG, QD (ORAL SOLUTION)
     Route: 048
     Dates: start: 20200528
  35. DEXAMETHASONE [Suspect]
     Active Substance: DEXAMETHASONE
     Dosage: 8 MILLIGRAM, ONCE A DAY
     Route: 048
     Dates: start: 20200528
  36. DEXAMETHASONE [Suspect]
     Active Substance: DEXAMETHASONE
     Dosage: 2 MILLIGRAM, ONCE A DAY(8 MG, QD (ORAL SOLUTION)
     Route: 048
     Dates: start: 20200521, end: 20200528
  37. DEXAMETHASONE [Suspect]
     Active Substance: DEXAMETHASONE
     Dosage: 8 MILLIGRAM, ONCE A DAY(2 MG, QD (ORAL SOLUTION)
     Route: 048
     Dates: start: 202005, end: 20200528
  38. DEXAMETHASONE [Suspect]
     Active Substance: DEXAMETHASONE
     Dosage: 8 MILLIGRAM, ONCE A DAY
     Route: 048
  39. DEXAMETHASONE [Suspect]
     Active Substance: DEXAMETHASONE
     Dosage: 2 MILLIGRAM, ONCE A DAY(8 MG, QD (ORAL SOLUTION)
     Route: 048
  40. DEXAMETHASONE [Suspect]
     Active Substance: DEXAMETHASONE
     Dosage: 2 MILLIGRAM, ONCE A DAY(8 MG, QD (ORAL SOLUTION)
     Route: 048
     Dates: start: 202005, end: 20200528
  41. DITIOCARB [Suspect]
     Active Substance: DITIOCARB
     Indication: Abdominal discomfort
     Dosage: 750 MILLIGRAM
     Route: 065
  42. ENBREL [Suspect]
     Active Substance: ETANERCEPT
     Indication: Rheumatoid arthritis
     Dosage: 50 MILLIGRAM, ONCE A DAY (50 MG WEEKLY)
     Route: 042
     Dates: start: 20100917
  43. ENBREL [Suspect]
     Active Substance: ETANERCEPT
     Dosage: 50 MILLIGRAM, EVERY WEEK
     Route: 065
     Dates: start: 20100917
  44. FOLIC ACID [Suspect]
     Active Substance: FOLIC ACID
     Indication: Product used for unknown indication
     Dosage: 5 MILLIGRAM, ONCE A DAY
     Route: 048
  45. FOLIC ACID [Suspect]
     Active Substance: FOLIC ACID
     Indication: Product used for unknown indication
     Dosage: 5 MILLIGRAM
     Route: 048
  46. FOLIC ACID [Suspect]
     Active Substance: FOLIC ACID
     Dosage: 5 MILLIGRAM, ONCE A DAY
     Route: 048
  47. FOLIC ACID [Suspect]
     Active Substance: FOLIC ACID
     Indication: Product used for unknown indication
     Dosage: 5 MILLIGRAM, ONCE A DAY
     Route: 048
  48. GUANIDINE [Suspect]
     Active Substance: GUANIDINE
     Indication: Depression
     Dosage: 750 MILLIGRAM, ONCE A DAY (1,3-DIPHENYLGUANIDINE)
     Route: 048
  49. GUANIDINE [Suspect]
     Active Substance: GUANIDINE
     Indication: Abdominal discomfort
  50. METHOTREXATE SODIUM [Suspect]
     Active Substance: METHOTREXATE SODIUM
     Indication: Rheumatoid arthritis
     Dosage: 17.5 MILLIGRAM, EVERY WEEK
     Route: 048
     Dates: start: 20100917
  51. METHOTREXATE SODIUM [Suspect]
     Active Substance: METHOTREXATE SODIUM
     Dosage: 18 MILLIGRAM, EVERY WEEK
     Route: 065
     Dates: start: 20100917
  52. OMEPRAZOLE [Suspect]
     Active Substance: OMEPRAZOLE
     Indication: Abdominal discomfort
     Dosage: 400 MILLIGRAM, ONCE A DAY
     Route: 048
  53. OMEPRAZOLE [Suspect]
     Active Substance: OMEPRAZOLE
     Dosage: 400 MICROGRAM, ONCE A DAY
     Route: 048
  54. OMEPRAZOLE [Suspect]
     Active Substance: OMEPRAZOLE
     Dosage: 40 MILLIGRAM, ONCE A DAY
     Route: 048
  55. OMEPRAZOLE [Suspect]
     Active Substance: OMEPRAZOLE
     Dosage: 12 MILLIGRAM, TWO TIMES A DAY
     Route: 048
  56. OMEPRAZOLE [Suspect]
     Active Substance: OMEPRAZOLE
     Dosage: 20 MILLIGRAM, ONCE A DAY
     Route: 048
     Dates: start: 20100917
  57. OMEPRAZOLE [Suspect]
     Active Substance: OMEPRAZOLE
     Dosage: 24 MILLIGRAM, ONCE A DAY
     Route: 003
  58. OMEPRAZOLE [Suspect]
     Active Substance: OMEPRAZOLE
     Dosage: 20 MILLIGRAM, TWO TIMES A DAY (20 MG, Q12H)
     Route: 048
  59. PHYLLOCONTIN [Suspect]
     Active Substance: AMINOPHYLLINE
     Indication: Pituitary tumour
     Dosage: 400 MILLIGRAM, ONCE A DAY
     Route: 065
     Dates: start: 20100917
  60. PHYLLOCONTIN [Suspect]
     Active Substance: AMINOPHYLLINE
     Indication: Depression
  61. SULFAGUANIDINE [Suspect]
     Active Substance: SULFAGUANIDINE
     Indication: Product used for unknown indication
     Dosage: 750 MILLIGRAM
     Route: 048
  62. VENLAFAXINE HYDROCHLORIDE [Suspect]
     Active Substance: VENLAFAXINE HYDROCHLORIDE
     Indication: Depression
     Dosage: 225 MILLIGRAM, ONCE A DAY
     Route: 065
  63. VENLAFAXINE HYDROCHLORIDE [Suspect]
     Active Substance: VENLAFAXINE HYDROCHLORIDE
     Indication: Rheumatoid arthritis
     Dosage: 2250 MILLIGRAM, ONCE A DAY
     Route: 065
  64. ZINC [Suspect]
     Active Substance: ZINC
     Indication: Abdominal discomfort
     Dosage: 750 MILLIGRAM, ONCE A DAY
     Route: 065
  65. ACTIVATED CHARCOAL [Concomitant]
     Active Substance: ACTIVATED CHARCOAL
     Indication: Product used for unknown indication
     Dosage: 750 MILLIGRAM
     Route: 065
  66. BENDROFLUMETHIAZIDE [Concomitant]
     Active Substance: BENDROFLUMETHIAZIDE
     Indication: Depression
     Dosage: UNK
     Route: 065
  67. BENDROFLUMETHIAZIDE [Concomitant]
     Active Substance: BENDROFLUMETHIAZIDE
     Indication: Pituitary tumour
  68. BENDROFLUMETHIAZIDE [Concomitant]
     Active Substance: BENDROFLUMETHIAZIDE
     Indication: Empty sella syndrome
  69. CABERGOLINE [Concomitant]
     Active Substance: CABERGOLINE
     Indication: Pituitary tumour
     Dosage: UNK
     Route: 065
  70. CABERGOLINE [Concomitant]
     Active Substance: CABERGOLINE
     Indication: Empty sella syndrome
     Dosage: 750 MILLIGRAM
     Route: 065
  71. ACTIVATED CHARCOAL [Concomitant]
     Active Substance: ACTIVATED CHARCOAL
     Indication: Product used for unknown indication
     Dosage: 750 MILLIGRAM
     Route: 065
  72. CETIRIZINE [Concomitant]
     Active Substance: CETIRIZINE HYDROCHLORIDE
     Indication: Abdominal discomfort
     Dosage: UNK
     Route: 065
  73. CETIRIZINE [Concomitant]
     Active Substance: CETIRIZINE HYDROCHLORIDE
     Indication: Abdominal discomfort
  74. EZETIMIBE [Concomitant]
     Active Substance: EZETIMIBE
     Indication: Product used for unknown indication
     Dosage: UNK
     Route: 065
  75. FOLIC ACID [Concomitant]
     Active Substance: FOLIC ACID
     Indication: Product used for unknown indication
     Dosage: 5 MILLIGRAM
     Route: 048
  76. LEVOTHYROXINE [Concomitant]
     Active Substance: LEVOTHYROXINE
     Indication: Abdominal discomfort
     Dosage: UNK
     Route: 065
  77. LEVOTHYROXINE [Concomitant]
     Active Substance: LEVOTHYROXINE
     Indication: Depression
  78. ORUVAIL [Concomitant]
     Active Substance: KETOPROFEN
     Indication: Empty sella syndrome
     Dosage: UNK
     Route: 065

REACTIONS (27)
  - COVID-19 [Fatal]
  - Schizophrenia [Fatal]
  - Lung neoplasm malignant [Fatal]
  - Radiation inflammation [Fatal]
  - Inflammation [Fatal]
  - Lower respiratory tract infection [Fatal]
  - Abdominal discomfort [Fatal]
  - Pulmonary pain [Fatal]
  - Knee arthroplasty [Fatal]
  - Arthropathy [Fatal]
  - Rash [Fatal]
  - Condition aggravated [Fatal]
  - Overdose [Fatal]
  - Off label use [Fatal]
  - Intentional product misuse [Fatal]
  - Drug abuse [Fatal]
  - Product dose omission issue [Fatal]
  - Food poisoning [Fatal]
  - Malaise [Fatal]
  - Diarrhoea [Fatal]
  - Illness [Fatal]
  - Oral pain [Fatal]
  - Genital pain [Fatal]
  - Dementia [Fatal]
  - Mucosal inflammation [Fatal]
  - Gastrointestinal pain [Fatal]
  - Drug interaction [Fatal]

NARRATIVE: CASE EVENT DATE: 20190121
